FAERS Safety Report 11719325 (Version 1)
Quarter: 2015Q4

REPORT INFORMATION
  Report Type: Spontaneous
  Country: US (occurrence: None)
  Receive Date: 20151109
  Receipt Date: 20151109
  Transmission Date: 20160304
  Serious: No
  Sender: FDA-Public Use
  Company Number: None

PATIENT
  Age: 46 Year
  Sex: Male
  Weight: 70.31 kg

DRUGS (1)
  1. BUPROPION XL [Suspect]
     Active Substance: BUPROPION
     Route: 048

REACTIONS (2)
  - Feeling abnormal [None]
  - Product quality issue [None]
